FAERS Safety Report 8374444-X (Version None)
Quarter: 2012Q2

REPORT INFORMATION
  Report Type: 
  Country: None (occurrence: None)
  Receive Date: 20120521
  Receipt Date: 20120514
  Transmission Date: 20120825
  Serious: Yes (Hospitalization)
  Sender: FDA-Public Use
  Company Number: PL-UCBSA-057359

PATIENT
  Age: 47 Year
  Sex: Female

DRUGS (3)
  1. METHYLPREDNISOLONE [Concomitant]
     Indication: RHEUMATOID ARTHRITIS
     Route: 048
  2. CIMZIA [Suspect]
     Route: 058
     Dates: start: 20111020, end: 20111117
  3. CIMZIA [Suspect]
     Indication: RHEUMATOID ARTHRITIS
     Route: 058
     Dates: start: 20111201, end: 20120405

REACTIONS (5)
  - NAUSEA [None]
  - HEADACHE [None]
  - PYREXIA [None]
  - ARTHRALGIA [None]
  - JOINT SWELLING [None]
